FAERS Safety Report 7575995-8 (Version None)
Quarter: 2011Q2

REPORT INFORMATION
  Report Type: 
  Country: None (occurrence: None)
  Receive Date: 20110628
  Receipt Date: 20110608
  Transmission Date: 20111010
  Serious: Yes (Other)
  Sender: FDA-Public Use
  Company Number: US-BAYER-2011-050237

PATIENT
  Age: 22 Year
  Sex: Female

DRUGS (2)
  1. MIRENA [Suspect]
     Indication: CONTRACEPTION
     Dosage: UNK
     Dates: start: 20110510, end: 20110511
  2. MIRENA [Suspect]
     Dosage: UNK
     Dates: start: 20110511

REACTIONS (2)
  - PAIN [None]
  - DEVICE DISLOCATION [None]
